FAERS Safety Report 8958044 (Version 1)
Quarter: 2012Q4

REPORT INFORMATION
  Report Type: 
  Country: US (occurrence: US)
  Receive Date: 20121211
  Receipt Date: 20121211
  Transmission Date: 20130627
  Serious: No
  Sender: FDA-Public Use
  Company Number: US-ABBOTT-12P-163-0916646-00

PATIENT
  Sex: Male
  Weight: 68.1 kg

DRUGS (4)
  1. VICODIN ES [Suspect]
     Indication: JOINT INJURY
     Dosage: Up to 3 tablets per day as needed.
     Route: 048
     Dates: start: 2002
  2. VICODIN ES [Suspect]
     Indication: ARTHRALGIA
  3. AMBIEN [Concomitant]
     Indication: INSOMNIA
  4. VITAMINS [Concomitant]
     Indication: PRODUCT USED FOR UNKNOWN INDICATION

REACTIONS (3)
  - Dry eye [Not Recovered/Not Resolved]
  - Lethargy [Not Recovered/Not Resolved]
  - Pain [Not Recovered/Not Resolved]
